FAERS Safety Report 9241138 (Version 1)
Quarter: 2013Q1

REPORT INFORMATION
  Report Type: Spontaneous
  Country: US (occurrence: None)
  Receive Date: 20121120
  Receipt Date: 20121120
  Transmission Date: 20140127
  Serious: No
  Sender: FDA-Public Use
  Company Number: 1000038216

PATIENT
  Age: 79 Year
  Sex: Female

DRUGS (12)
  1. VIIBRYD [Suspect]
     Indication: DEPRESSION
     Dosage: 10MG (10MG, 1 I 1 D) ORAL
     Route: 048
     Dates: start: 201205
  2. VIIBRYD [Suspect]
     Indication: ANXIETY
     Dosage: 10MG (10MG, 1 I 1 D) ORAL
     Route: 048
     Dates: start: 201205
  3. TOPROL (METOPROLOL SUCCINATE) [Concomitant]
  4. LIPITOR (ATORVASTATIN CALCIUM) [Concomitant]
  5. DILTIAZEM (DILTIAZEM HYDROCHLORIDE) [Concomitant]
  6. WARFARIN (WARFARIN) [Concomitant]
  7. FUROSEMIDE (FUROSEMIDE) [Concomitant]
  8. LEVOTHYROXINE (LEVOTHYROXINE SODIUM) [Concomitant]
  9. PREDNISONE (PREDNISONE) [Concomitant]
  10. LORAZEPAM (LORAZEPAM) [Concomitant]
  11. ANASTROZOLE (ANASTROZOLE) [Concomitant]
  12. EFFEXOR (VENLAFAXINE HYDROCHLORIDE) UNKNOWN [Concomitant]

REACTIONS (3)
  - Diarrhoea [None]
  - Dyspnoea [None]
  - Feeling hot [None]
